FAERS Safety Report 7770558-3 (Version None)
Quarter: 2011Q3

REPORT INFORMATION
  Report Type: 
  Country: None (occurrence: None)
  Receive Date: 20110922
  Receipt Date: 20110908
  Transmission Date: 20111222
  Serious: Yes (Other)
  Sender: FDA-Public Use
  Company Number: PHHY2011BR80548

PATIENT
  Age: 71 Year
  Sex: Male
  Weight: 70 kg

DRUGS (11)
  1. MONOCORDIL [Concomitant]
     Dosage: 20 MG, TID
  2. ASPIRIN [Concomitant]
     Dosage: 200 MG, UNK
  3. DIOVAN [Suspect]
     Dosage: 160 MG, UNK
  4. GLYBURIDE [Concomitant]
     Dosage: 5 MG, BID
  5. ATORVASTATIN [Concomitant]
     Dosage: 10 MG, UNK
  6. INDAPAMIDE [Concomitant]
     Dosage: 1.5 MG, UNK
  7. METFORMIN [Concomitant]
     Dosage: 500 MG, BID
  8. GLICLAZIDE [Concomitant]
     Dosage: 30 MG, TID
  9. INSULIN GLARGINE [Concomitant]
     Dosage: 14 IU, UNK
  10. ATORVASTATIN [Concomitant]
     Dosage: 40 MG, DAILY
  11. INSULIN [Concomitant]
     Dosage: 20 IU, UNK

REACTIONS (8)
  - CIRCULATORY COLLAPSE [None]
  - HYPOGLYCAEMIA [None]
  - TYPE 2 DIABETES MELLITUS [None]
  - BLOOD PRESSURE INCREASED [None]
  - BLOOD GLUCOSE INCREASED [None]
  - NEUROPATHY PERIPHERAL [None]
  - ACUTE MYOCARDIAL INFARCTION [None]
  - PEMPHIGOID [None]
